FAERS Safety Report 16774165 (Version 1)
Quarter: 2019Q3

REPORT INFORMATION
  Report Type: Spontaneous
  Country: US (occurrence: US)
  Receive Date: 20190905
  Receipt Date: 20190905
  Transmission Date: 20191005
  Serious: No
  Sender: FDA-Public Use
  Company Number: US-LUPIN PHARMACEUTICALS INC.-2019-00555

PATIENT
  Sex: Female

DRUGS (1)
  1. AMLODIPINE [Suspect]
     Active Substance: AMLODIPINE BESYLATE
     Indication: PRODUCT USED FOR UNKNOWN INDICATION
     Dosage: 5 MG, UNK (3 WEEKS AGO)
     Route: 065

REACTIONS (5)
  - Hypersensitivity [Unknown]
  - Flushing [Unknown]
  - Heart rate abnormal [Unknown]
  - Diarrhoea [Unknown]
  - Rash [Unknown]
